FAERS Safety Report 7944896-5 (Version None)
Quarter: 2011Q4

REPORT INFORMATION
  Report Type: 
  Country: None (occurrence: None)
  Receive Date: 20111129
  Receipt Date: 20111121
  Transmission Date: 20120403
  Serious: Yes (Other)
  Sender: FDA-Public Use
  Company Number: US-BAYER-2011-113862

PATIENT
  Age: 15 Year
  Sex: Male
  Weight: 57.143 kg

DRUGS (1)
  1. ALEVE (CAPLET) [Suspect]
     Indication: ARTHRALGIA
     Dosage: 2 DF, QD
     Route: 048
     Dates: start: 20111115, end: 20111119

REACTIONS (17)
  - VOMITING [None]
  - HEART RATE INCREASED [None]
  - DYSPNOEA [None]
  - VISION BLURRED [None]
  - MOBILITY DECREASED [None]
  - ASTHENIA [None]
  - MUSCULAR WEAKNESS [None]
  - DEHYDRATION [None]
  - BLOOD ELECTROLYTES ABNORMAL [None]
  - WHITE BLOOD CELL COUNT INCREASED [None]
  - URINE ANALYSIS ABNORMAL [None]
  - DYSARTHRIA [None]
  - SYNCOPE [None]
  - PRESYNCOPE [None]
  - VISUAL ACUITY REDUCED [None]
  - DIZZINESS [None]
  - BRADYKINESIA [None]
